FAERS Safety Report 9518553 (Version 1)
Quarter: 2013Q4

REPORT INFORMATION
  Report Type: Spontaneous
  Country: US (occurrence: None)
  Receive Date: 20130910
  Receipt Date: 20130910
  Transmission Date: 20140711
  Serious: Yes (Hospitalization)
  Sender: FDA-Public Use
  Company Number: None

PATIENT
  Age: 43 Year
  Sex: 0
  Weight: 79.2 kg

DRUGS (3)
  1. NULOJIX [Suspect]
     Indication: RENAL TRANSPLANT
     Dosage: 787.5MG Q 4 WEEKS  IV
     Route: 042
     Dates: start: 20130702
  2. ALEMTUZUMAB [Concomitant]
  3. PREDNISONE [Concomitant]

REACTIONS (6)
  - Wound secretion [None]
  - Purulence [None]
  - Drug dose omission [None]
  - Transplant rejection [None]
  - Postoperative wound infection [None]
  - Blood creatinine increased [None]
